FAERS Safety Report 5274424-7 (Version None)
Quarter: 2007Q1

REPORT INFORMATION
  Report Type: 
  Country: None (occurrence: None)
  Receive Date: 20070323
  Receipt Date: 20070313
  Transmission Date: 20070707
  Serious: Yes (Hospitalization)
  Sender: FDA-Public Use
  Company Number: NL-PFIZER INC-2007017746

PATIENT
  Sex: Male
  Weight: 72 kg

DRUGS (3)
  1. SUTENT [Suspect]
     Indication: RENAL CELL CARCINOMA STAGE UNSPECIFIED
     Route: 048
     Dates: start: 20070104, end: 20070201
  2. OXYCODONE HCL [Suspect]
     Indication: PAIN
     Route: 048
  3. MOVICOLON [Concomitant]
     Route: 048

REACTIONS (1)
  - RETINAL DETACHMENT [None]
